FAERS Safety Report 21627767 (Version 1)
Quarter: 2022Q4

REPORT INFORMATION
  Report Type: Spontaneous
  Country: US (occurrence: US)
  Receive Date: 20221122
  Receipt Date: 20221122
  Transmission Date: 20230113
  Serious: No
  Sender: FDA-Public Use
  Company Number: US-002147023-NVSC2022US261770

PATIENT

DRUGS (1)
  1. LEQVIO [Suspect]
     Active Substance: INCLISIRAN SODIUM
     Indication: Low density lipoprotein decreased
     Dosage: 284 MG, OTHER (1 MONTH 3 MONTH EVERY 6 MONTH)
     Route: 058
     Dates: start: 20221118, end: 20221118

REACTIONS (1)
  - Headache [Unknown]

NARRATIVE: CASE EVENT DATE: 20221118
